FAERS Safety Report 8525692-7 (Version None)
Quarter: 2012Q3

REPORT INFORMATION
  Report Type: 
  Country: None (occurrence: None)
  Receive Date: 20120720
  Receipt Date: 20120713
  Transmission Date: 20120928
  Serious: Yes (Other)
  Sender: FDA-Public Use
  Company Number: US-US-EMD SERONO, INC.-7125681

PATIENT
  Sex: Female

DRUGS (3)
  1. OXYBUTYNIN [Concomitant]
     Indication: PRODUCT USED FOR UNKNOWN INDICATION
  2. REBIF [Suspect]
     Indication: MULTIPLE SCLEROSIS
     Route: 058
     Dates: start: 20100107, end: 20120201
  3. REBIF [Suspect]
     Route: 058
     Dates: start: 20120301

REACTIONS (7)
  - HEADACHE [None]
  - DYSPEPSIA [None]
  - INAPPROPRIATE SCHEDULE OF DRUG ADMINISTRATION [None]
  - INFLUENZA LIKE ILLNESS [None]
  - BUNDLE BRANCH BLOCK [None]
  - OPTIC NERVE DISORDER [None]
  - INJECTION SITE ERYTHEMA [None]
